FAERS Safety Report 8391709-6 (Version None)
Quarter: 2012Q1

REPORT INFORMATION
  Report Type: 
  Country: None (occurrence: None)
  Receive Date: 20120323
  Receipt Date: 20110311
  Transmission Date: 20120608
  Serious: Yes (Hospitalization, Other)
  Sender: FDA-Public Use
  Company Number: 163-21880-11031434

PATIENT
  Age: 77 Year
  Sex: Female
  Weight: 66.6788 kg

DRUGS (1)
  1. REVLIMID [Suspect]
     Indication: MULTIPLE MYELOMA
     Dosage: 10 MG, 1 IN 1 D, PO
     Route: 048
     Dates: start: 20110216, end: 20110301

REACTIONS (2)
  - VOMITING [None]
  - OEDEMA PERIPHERAL [None]
